FAERS Safety Report 7671524-9 (Version None)
Quarter: 2011Q3

REPORT INFORMATION
  Report Type: 
  Country: None (occurrence: None)
  Receive Date: 20110728
  Receipt Date: 20110309
  Transmission Date: 20111222
  Serious: Yes (Other)
  Sender: FDA-Public Use
  Company Number: 2011027859

PATIENT
  Age: 61 Year
  Sex: Female
  Weight: 88.4514 kg

DRUGS (25)
  1. LIPITOR [Concomitant]
  2. FLUTICASONE PROPIONATE [Concomitant]
  3. ASPIRIN [Concomitant]
  4. HIZENTRA [Suspect]
  5. ISOSORBIDE (ISOSORBIDE) [Concomitant]
  6. NEXIUM [Concomitant]
  7. HIZENTRA [Suspect]
  8. SYMBICORT [Concomitant]
  9. KLOR-CON [Concomitant]
  10. DIPHENHYDRAMINE HCL [Concomitant]
  11. SPIRIVA [Concomitant]
  12. LIDOCAINE [Concomitant]
  13. DUONEB [Concomitant]
  14. TRAMADOL HCL [Concomitant]
  15. HIZENTRA [Suspect]
     Indication: IMMUNODEFICIENCY COMMON VARIABLE
     Dosage: SEE IMAGE
     Route: 058
     Dates: start: 20110411
  16. HIZENTRA [Suspect]
     Indication: IMMUNODEFICIENCY COMMON VARIABLE
     Dosage: SEE IMAGE
     Route: 058
     Dates: start: 20110411
  17. HIZENTRA [Suspect]
     Indication: IMMUNODEFICIENCY COMMON VARIABLE
     Dosage: SEE IMAGE
     Route: 058
     Dates: start: 20110630
  18. HIZENTRA [Suspect]
     Indication: IMMUNODEFICIENCY COMMON VARIABLE
     Dosage: SEE IMAGE
     Route: 058
     Dates: start: 20110304
  19. HIZENTRA [Suspect]
     Indication: IMMUNODEFICIENCY COMMON VARIABLE
     Dosage: SEE IMAGE
     Route: 058
     Dates: start: 20110630
  20. ONGLYZA (DRUG USED IN DIABETES) [Concomitant]
  21. ATENOLOL [Concomitant]
  22. HIZENTRA [Suspect]
  23. LASIX [Concomitant]
  24. BUPROPION HCL [Concomitant]
  25. EPIPEN [Concomitant]

REACTIONS (5)
  - FATIGUE [None]
  - INFUSION SITE IRRITATION [None]
  - URINARY TRACT INFECTION [None]
  - PAIN [None]
  - SINUSITIS [None]
